FAERS Safety Report 4528056-6 (Version None)
Quarter: 2004Q4

REPORT INFORMATION
  Report Type: 
  Country: None (occurrence: None)
  Receive Date: 20041123
  Receipt Date: 20040518
  Transmission Date: 20050328
  Serious: Yes (Other)
  Sender: FDA-Public Use
  Company Number: 2004033554

PATIENT
  Age: 82 Year
  Sex: Male
  Weight: 78.9259 kg

DRUGS (7)
  1. LIPITOR [Suspect]
     Indication: LOW DENSITY LIPOPROTEIN INCREASED
     Dosage: 10 MG (1 IN 1 D), ORAL
     Route: 048
     Dates: start: 20040122
  2. DUTASTERIDE (DUTASTERIDE) [Suspect]
     Indication: BENIGN PROSTATIC HYPERPLASIA
     Dates: start: 20040101, end: 20040101
  3. CARVEDILOL [Concomitant]
  4. LOSARTAN POTASSIUM [Concomitant]
  5. DIGOXIN [Concomitant]
  6. FUROSEMIDE [Concomitant]
  7. WARFARIN SODIUM [Concomitant]

REACTIONS (3)
  - BENIGN PROSTATIC HYPERPLASIA [None]
  - DIARRHOEA [None]
  - THROMBOCYTOPENIA [None]
